FAERS Safety Report 9307193 (Version 1)
Quarter: 2013Q2

REPORT INFORMATION
  Report Type: Spontaneous
  Country: TW (occurrence: TW)
  Receive Date: 20130524
  Receipt Date: 20130524
  Transmission Date: 20140414
  Serious: Yes (Death, Other)
  Sender: FDA-Public Use
  Company Number: TW-ROCHE-669677

PATIENT
  Age: 53 Year
  Sex: Female

DRUGS (2)
  1. AVASTIN [Suspect]
     Indication: GLIOBLASTOMA MULTIFORME
     Dosage: FORM: INFUSION
     Route: 042
     Dates: start: 2009, end: 20091117
  2. TEMOZOLOMIDE [Suspect]
     Indication: GLIOBLASTOMA MULTIFORME
     Route: 065

REACTIONS (4)
  - Haemorrhage intracranial [Fatal]
  - Death [Fatal]
  - Coma [Not Recovered/Not Resolved]
  - Subdural haematoma [Unknown]
